FAERS Safety Report 14128594 (Version 1)
Quarter: 2017Q4

REPORT INFORMATION
  Report Type: Spontaneous
  Country: US (occurrence: US)
  Receive Date: 20171026
  Receipt Date: 20171026
  Transmission Date: 20180321
  Serious: Yes (Life-Threatening, Hospitalization)
  Sender: FDA-Public Use
  Company Number: None

PATIENT
  Age: 30 Month
  Sex: Male
  Weight: 14 kg

DRUGS (2)
  1. ALPROLIX [Suspect]
     Active Substance: EFTRENONACOG ALFA
     Indication: ACQUIRED HAEMOPHILIA
     Dosage: ?          OTHER FREQUENCY:INFUSE ONCE UTD;?
     Route: 042
     Dates: start: 20171018, end: 20171018
  2. ALPROLIX [Suspect]
     Active Substance: EFTRENONACOG ALFA
     Indication: ACQUIRED HAEMOPHILIA
     Dosage: ?          OTHER FREQUENCY:INFUSE ONCE UTD;?
     Route: 042
     Dates: start: 20171018, end: 20171018

REACTIONS (5)
  - Skin discolouration [None]
  - Vomiting [None]
  - Swollen tongue [None]
  - Screaming [None]
  - Defaecation urgency [None]

NARRATIVE: CASE EVENT DATE: 20171018
